FAERS Safety Report 16092739 (Version 1)
Quarter: 2019Q1

REPORT INFORMATION
  Report Type: Report from Study
  Country: None (occurrence: US)
  Receive Date: 20190319
  Receipt Date: 20190319
  Transmission Date: 20190418
  Serious: Yes (Hospitalization)
  Sender: FDA-Public Use
  Company Number: US-ABBVIE-19K-163-2650495-00

PATIENT
  Age: 64 Year
  Sex: Male

DRUGS (2)
  1. HUMIRA [Suspect]
     Active Substance: ADALIMUMAB
     Dosage: DAY 08
     Route: 058
     Dates: start: 20190113
  2. HUMIRA [Suspect]
     Active Substance: ADALIMUMAB
     Indication: PSORIASIS
     Dosage: DAY 01
     Route: 058
     Dates: start: 20190106, end: 20190106

REACTIONS (9)
  - Gait disturbance [Unknown]
  - Skin irritation [Unknown]
  - Pruritus [Unknown]
  - Limb injury [Unknown]
  - Dry skin [Unknown]
  - Cellulitis [Unknown]
  - Scab [Not Recovered/Not Resolved]
  - Skin plaque [Recovering/Resolving]
  - White blood cell count decreased [Unknown]

NARRATIVE: CASE EVENT DATE: 2019
